FAERS Safety Report 4896691-1 (Version None)
Quarter: 2006Q1

REPORT INFORMATION
  Report Type: 
  Country: None (occurrence: None)
  Receive Date: 20060131
  Receipt Date: 20060120
  Transmission Date: 20060701
  Serious: Yes (Life-Threatening, Hospitalization)
  Sender: FDA-Public Use
  Company Number: DK-JNJFOC-20060104161

PATIENT
  Sex: Female
  Weight: 55 kg

DRUGS (2)
  1. NIZORAL [Suspect]
     Indication: URTICARIA
     Dates: start: 20051111, end: 20051114
  2. VALPROATE SODIUM [Concomitant]
     Dosage: ADMINISTERED FOR A SHORT TIME.

REACTIONS (5)
  - DIARRHOEA [None]
  - HYPONATRAEMIA [None]
  - LOSS OF CONSCIOUSNESS [None]
  - PYREXIA [None]
  - VOMITING [None]
